FAERS Safety Report 5779595-1 (Version None)
Quarter: 2008Q2

REPORT INFORMATION
  Report Type: 
  Country: None (occurrence: None)
  Receive Date: 20080619
  Receipt Date: 20080610
  Transmission Date: 20081010
  Serious: Yes (Death)
  Sender: FDA-Public Use
  Company Number: US-PFIZER INC-2008048382

PATIENT
  Sex: Male
  Weight: 113 kg

DRUGS (1)
  1. LINEZOLID [Suspect]
     Indication: PNEUMONIA

REACTIONS (1)
  - DEATH [None]
